FAERS Safety Report 9713882 (Version 2)
Quarter: 2013Q4

REPORT INFORMATION
  Report Type: Spontaneous
  Country: US (occurrence: US)
  Receive Date: 20131126
  Receipt Date: 20131126
  Transmission Date: 20140711
  Serious: Yes (Hospitalization)
  Sender: FDA-Public Use
  Company Number: US-UCBSA-036770

PATIENT
  Age: 40 Year
  Sex: Female

DRUGS (6)
  1. CIMZIA [Suspect]
     Indication: CROHN^S DISEASE
     Route: 058
     Dates: start: 20080917
  2. TOFRANIL [Concomitant]
  3. BENAZEPRIL [Concomitant]
     Indication: HYPERTENSION
     Dosage: DAILY
  4. LIALDA [Concomitant]
  5. VICODIN [Concomitant]
     Indication: PAIN
  6. ZOFRAN [Concomitant]
     Indication: NAUSEA

REACTIONS (6)
  - Fistula [Unknown]
  - Gastrointestinal pain [Not Recovered/Not Resolved]
  - Rectal haemorrhage [Not Recovered/Not Resolved]
  - Arthralgia [Not Recovered/Not Resolved]
  - Joint swelling [Not Recovered/Not Resolved]
  - Inappropriate schedule of drug administration [Not Recovered/Not Resolved]
